FAERS Safety Report 9202809 (Version 2)
Quarter: 2013Q2

REPORT INFORMATION
  Report Type: Report from Study
  Country: US (occurrence: US)
  Receive Date: 20130401
  Receipt Date: 20130419
  Transmission Date: 20140414
  Serious: Yes (Hospitalization)
  Sender: FDA-Public Use
  Company Number: US-ABBOTT-13P-163-1068486-00

PATIENT
  Age: 41 Year
  Sex: Male

DRUGS (51)
  1. HUMIRA [Suspect]
     Indication: CROHN^S DISEASE
     Dates: start: 20121031, end: 20130328
  2. PROBABLY ALL THE ORAL PILLS [Concomitant]
     Indication: PRODUCT USED FOR UNKNOWN INDICATION
     Dosage: UNSURE WHICH MEDICATIONS ARE AT HOME
     Route: 048
  3. PROBABLY ALL THE INHALERS [Concomitant]
     Indication: PRODUCT USED FOR UNKNOWN INDICATION
     Dosage: UNSURE WHICH MEDICATIONS ARE AT HOME
     Route: 055
  4. NORVASC [Concomitant]
     Indication: PRODUCT USED FOR UNKNOWN INDICATION
  5. MERREM [Concomitant]
     Indication: PRODUCT USED FOR UNKNOWN INDICATION
  6. HEPARIN [Concomitant]
     Indication: PRODUCT USED FOR UNKNOWN INDICATION
     Route: 050
  7. ATIVAN [Concomitant]
     Indication: PRODUCT USED FOR UNKNOWN INDICATION
     Route: 042
  8. DILAUDID [Concomitant]
     Indication: PRODUCT USED FOR UNKNOWN INDICATION
  9. CELEXA [Concomitant]
     Indication: PRODUCT USED FOR UNKNOWN INDICATION
  10. FLOMAX [Concomitant]
     Indication: PRODUCT USED FOR UNKNOWN INDICATION
  11. LOPRESSOR [Concomitant]
     Indication: PRODUCT USED FOR UNKNOWN INDICATION
  12. ZOFRAN [Concomitant]
     Indication: NAUSEA
     Route: 042
  13. AMBIEN [Concomitant]
     Indication: PRODUCT USED FOR UNKNOWN INDICATION
  14. NORCO [Concomitant]
     Indication: PRODUCT USED FOR UNKNOWN INDICATION
  15. IMMEDIATE RELEASE MORPHINE [Concomitant]
     Indication: PRODUCT USED FOR UNKNOWN INDICATION
  16. MAGNESIUM [Concomitant]
     Indication: PRODUCT USED FOR UNKNOWN INDICATION
     Route: 048
  17. SODIUM BICARBONATE [Concomitant]
     Indication: PRODUCT USED FOR UNKNOWN INDICATION
  18. AZATHIOPRINE [Concomitant]
     Indication: PRODUCT USED FOR UNKNOWN INDICATION
  19. FLONASE [Concomitant]
     Indication: PRODUCT USED FOR UNKNOWN INDICATION
  20. CREON [Concomitant]
     Indication: PRODUCT USED FOR UNKNOWN INDICATION
  21. FOLIC ACID [Concomitant]
     Indication: VITAMIN SUPPLEMENTATION
  22. CALCIUM WITH VITAMIN D [Concomitant]
     Indication: MINERAL SUPPLEMENTATION
  23. COMPAZINE [Concomitant]
     Indication: PRODUCT USED FOR UNKNOWN INDICATION
  24. HYTRIN [Concomitant]
     Indication: BLOOD PRESSURE
     Dosage: AT BEDIME
  25. HYTRIN [Concomitant]
     Indication: DYSURIA
  26. ATARAX [Concomitant]
     Indication: PRODUCT USED FOR UNKNOWN INDICATION
  27. ADVAIR [Concomitant]
     Indication: PRODUCT USED FOR UNKNOWN INDICATION
     Dosage: INHALER
  28. SINGULAR [Concomitant]
     Indication: CHRONIC OBSTRUCTIVE PULMONARY DISEASE
  29. SINGULAR [Concomitant]
     Indication: ASTHMA
  30. SPIRIVA [Concomitant]
     Indication: PRODUCT USED FOR UNKNOWN INDICATION
     Dosage: INHALER
  31. ELAVIL [Concomitant]
     Indication: PRODUCT USED FOR UNKNOWN INDICATION
  32. REMERON [Concomitant]
     Indication: PRODUCT USED FOR UNKNOWN INDICATION
  33. TRAZODONE [Concomitant]
     Indication: INSOMNIA
     Dosage: AT BEDTIME
  34. LOMOTIL [Concomitant]
     Indication: PRODUCT USED FOR UNKNOWN INDICATION
  35. QUESTRAN [Concomitant]
     Indication: PRODUCT USED FOR UNKNOWN INDICATION
  36. ALBUTEROL/PROVENTIL NEBULIZER [Concomitant]
     Indication: ASTHMA
  37. ALBUTEROL/PROVENTIL NEBULIZER [Concomitant]
     Indication: CHRONIC OBSTRUCTIVE PULMONARY DISEASE
  38. METOPROLOL [Concomitant]
     Indication: BLOOD PRESSURE
  39. AMLODOPINE [Concomitant]
     Indication: BLOOD PRESSURE
  40. TAMSOLSY [Concomitant]
     Indication: CARDIAC DISORDER
  41. FERROUS SULFATE [Concomitant]
     Indication: MINERAL SUPPLEMENTATION
  42. CHLORPERIZINE [Concomitant]
     Indication: NAUSEA
  43. AMYLTRIPTILINE [Concomitant]
     Indication: INSOMNIA
     Dosage: AT HS
  44. FENTANYL [Concomitant]
     Indication: PAIN
  45. LORAZEPAM [Concomitant]
     Indication: ANXIETY
  46. FLONASE [Concomitant]
     Indication: HYPERSENSITIVITY
     Dosage: 1-2 SPRAYS EACH NOSTRIL
  47. HYDROXIZINE [Concomitant]
     Indication: PRURITUS
  48. LEXAPRO [Concomitant]
     Indication: DEPRESSION
  49. MORPHINE [Concomitant]
     Indication: PAIN
  50. REMERON [Concomitant]
     Indication: ANTIDEPRESSANT THERAPY
     Dosage: AT BEDTIME
  51. CODIENE [Concomitant]
     Indication: GASTROINTESTINAL STOMA COMPLICATION

REACTIONS (6)
  - Renal failure acute [Not Recovered/Not Resolved]
  - Hypovolaemia [Not Recovered/Not Resolved]
  - Pulmonary oedema [Not Recovered/Not Resolved]
  - Dehydration [Not Recovered/Not Resolved]
  - Dyspnoea [Not Recovered/Not Resolved]
  - Dysuria [Not Recovered/Not Resolved]
